FAERS Safety Report 4918665-4 (Version None)
Quarter: 2006Q1

REPORT INFORMATION
  Report Type: 
  Country: None (occurrence: None)
  Receive Date: 20060222
  Receipt Date: 20060214
  Transmission Date: 20060701
  Serious: Yes (Other)
  Sender: FDA-Public Use
  Company Number: 2006UW02715

PATIENT
  Age: 79 Year
  Sex: Female

DRUGS (4)
  1. LOSEC [Suspect]
     Route: 048
     Dates: start: 20051201, end: 20060213
  2. GLYBURIDE [Concomitant]
  3. ATENOLOL [Concomitant]
  4. ENALAPRIL [Concomitant]

REACTIONS (5)
  - CONFUSIONAL STATE [None]
  - DYSPHAGIA [None]
  - HALLUCINATION [None]
  - SOMNOLENCE [None]
  - SPEECH DISORDER [None]
